FAERS Safety Report 20685924 (Version 2)
Quarter: 2022Q2

REPORT INFORMATION
  Report Type: Report from Study
  Country: US (occurrence: US)
  Receive Date: 20220407
  Receipt Date: 20220426
  Transmission Date: 20220721
  Serious: Yes (Hospitalization)
  Sender: FDA-Public Use
  Company Number: US-BAYER-2022A047840

PATIENT
  Age: 14 Year
  Sex: Female
  Weight: 49.5 kg

DRUGS (8)
  1. REGORAFENIB [Suspect]
     Active Substance: REGORAFENIB
     Indication: Osteosarcoma recurrent
     Dosage: 120 MG, QD
     Route: 048
     Dates: start: 20220316, end: 20220323
  2. NIVOLUMAB [Suspect]
     Active Substance: NIVOLUMAB
     Indication: Osteosarcoma recurrent
     Dosage: 154.8 MG, ONCE (3MG/KG)
     Route: 042
     Dates: start: 20220316
  3. LORAZEPAM [Concomitant]
     Active Substance: LORAZEPAM
     Indication: Anxiety
     Dosage: 0.5 MG, PRN
     Dates: start: 20210802
  4. OXYCODONE [Concomitant]
     Active Substance: OXYCODONE
     Indication: Pain
     Dosage: 5 MG, PRN
     Dates: start: 20210812
  5. PROCHLORPERAZINE [Concomitant]
     Active Substance: PROCHLORPERAZINE
     Indication: Nausea
     Dosage: 10 MG, PRN
     Dates: start: 20210713
  6. PROCHLORPERAZINE [Concomitant]
     Active Substance: PROCHLORPERAZINE
     Indication: Vomiting
  7. SENNA [Concomitant]
     Active Substance: SENNA LEAF\SENNOSIDES\SENNOSIDES A AND B
     Indication: Constipation
     Dosage: 8.6 MG, PRN
     Dates: start: 20210713
  8. ONDANSETRON [Concomitant]
     Active Substance: ONDANSETRON
     Indication: Nausea
     Dosage: 8 MG, TID, PRN

REACTIONS (4)
  - Pyrexia [Recovered/Resolved]
  - Hypokalaemia [Recovered/Resolved]
  - Hyponatraemia [Recovering/Resolving]
  - Rash [Recovering/Resolving]

NARRATIVE: CASE EVENT DATE: 20220325
